FAERS Safety Report 9201895 (Version 1)
Quarter: 2013Q2

REPORT INFORMATION
  Report Type: Report from Study
  Country: JP (occurrence: JP)
  Receive Date: 20130401
  Receipt Date: 20130401
  Transmission Date: 20140414
  Serious: Yes (Other)
  Sender: FDA-Public Use
  Company Number: JP-ROCHE-1207841

PATIENT
  Age: 85 Year
  Sex: Female

DRUGS (9)
  1. METHOXY POLYETHYLENE GLYCOL-EPOETIN BETA [Suspect]
     Indication: NEPHROGENIC ANAEMIA
     Route: 058
     Dates: start: 20120403, end: 20120710
  2. URSO [Concomitant]
     Route: 048
  3. FUROSEMIDE [Concomitant]
     Indication: GLOMERULONEPHRITIS CHRONIC
     Route: 048
  4. LIPITOR [Concomitant]
     Indication: HYPERLIPIDAEMIA
     Route: 048
  5. KERLONG [Concomitant]
     Indication: HYPERTENSION
     Route: 048
  6. ADALAT CR [Concomitant]
     Indication: GLOMERULONEPHRITIS CHRONIC
     Route: 048
  7. ALLOPURINOL [Concomitant]
     Route: 048
  8. DIOVAN [Concomitant]
     Indication: HYPERTENSION
     Route: 048
  9. KREMEZIN [Concomitant]
     Indication: GLOMERULONEPHRITIS CHRONIC
     Route: 048

REACTIONS (2)
  - Anaemia [Recovered/Resolved]
  - Rheumatoid arthritis [Unknown]
